FAERS Safety Report 5051364-X (Version None)
Quarter: 2006Q3

REPORT INFORMATION
  Report Type: 
  Country: None (occurrence: None)
  Receive Date: 20060710
  Receipt Date: 20060629
  Transmission Date: 20061208
  Serious: Yes (Hospitalization, Other)
  Sender: FDA-Public Use
  Company Number: 2006-04-0702

PATIENT
  Age: 38 Year
  Sex: Female

DRUGS (7)
  1. PEG-INTRON [Suspect]
     Indication: HEPATITIS C
     Dosage: SUBCUTANEOUS
     Route: 058
     Dates: start: 20050509, end: 20060403
  2. RIBAVIRIN [Suspect]
     Indication: HEPATITIS C
     Dosage: ORAL
     Route: 048
     Dates: start: 20050509, end: 20060403
  3. CARDIZEM [Concomitant]
  4. MAXALT [Concomitant]
  5. VICODIN [Concomitant]
  6. LITHIUM CARBONATE [Concomitant]
  7. PAROXETINE HYDROCHLORIDE [Concomitant]

REACTIONS (29)
  - ABDOMINAL PAIN [None]
  - ALOPECIA [None]
  - ARTHRALGIA [None]
  - ASTHMA [None]
  - COUGH [None]
  - DEHYDRATION [None]
  - DIARRHOEA [None]
  - DRUG INEFFECTIVE [None]
  - DYSPNOEA [None]
  - EAR PAIN [None]
  - FLUID INTAKE REDUCED [None]
  - HYPERHIDROSIS [None]
  - MIGRAINE [None]
  - MUSCLE SPASMS [None]
  - MYALGIA [None]
  - NAUSEA [None]
  - PAIN IN JAW [None]
  - PAINFUL DEFAECATION [None]
  - PULMONARY THROMBOSIS [None]
  - SELF-INJURIOUS IDEATION [None]
  - SUICIDAL IDEATION [None]
  - SYNCOPE [None]
  - THROAT IRRITATION [None]
  - THROMBOSIS [None]
  - THYROID DISORDER [None]
  - VISUAL DISTURBANCE [None]
  - WEIGHT INCREASED [None]
  - WHEEZING [None]
  - WHITE BLOOD CELL COUNT DECREASED [None]
